FAERS Safety Report 10420021 (Version 2)
Quarter: 2014Q4

REPORT INFORMATION
  Report Type: Report from Study
  Country: CA (occurrence: CA)
  Receive Date: 20140829
  Receipt Date: 20141110
  Transmission Date: 20150528
  Serious: Yes (Other)
  Sender: FDA-Public Use
  Company Number: CA-BAXTER-2014BAX051021

PATIENT
  Age: 16 Year
  Sex: Female

DRUGS (2)
  1. GAMMAGARD LIQUID [Suspect]
     Active Substance: HUMAN IMMUNOGLOBULIN G
     Indication: MENORRHAGIA
  2. GAMMAGARD LIQUID [Suspect]
     Active Substance: HUMAN IMMUNOGLOBULIN G
     Indication: IMMUNE THROMBOCYTOPENIC PURPURA
     Dosage: 3 COURSES
     Route: 042

REACTIONS (6)
  - Hemiparesis [Recovered/Resolved with Sequelae]
  - Cerebral thrombosis [Recovered/Resolved with Sequelae]
  - Intracranial venous sinus thrombosis [Recovered/Resolved with Sequelae]
  - Seizure [Recovered/Resolved]
  - Thrombocytopenia [Recovered/Resolved with Sequelae]
  - Meningitis aseptic [Recovered/Resolved with Sequelae]
